FAERS Safety Report 18582394 (Version 1)
Quarter: 2020Q4

REPORT INFORMATION
  Report Type: Spontaneous
  Country: FR (occurrence: FR)
  Receive Date: 20201205
  Receipt Date: 20201205
  Transmission Date: 20210114
  Serious: Yes (Hospitalization, Other)
  Sender: FDA-Public Use
  Company Number: FR-AUROBINDO-AUR-APL-2020-059551

PATIENT
  Age: 80 Year
  Sex: Male
  Weight: 94 kg

DRUGS (2)
  1. AMOXICILLIN. [Suspect]
     Active Substance: AMOXICILLIN
     Indication: ERYSIPELAS
     Dosage: 2 GRAM, ONCE A DAY
     Route: 042
     Dates: start: 20161110, end: 20161129
  2. IRBESARTAN. [Suspect]
     Active Substance: IRBESARTAN
     Indication: PROTEINURIA
     Dosage: UNK
     Route: 048
     Dates: start: 20161110, end: 20161129

REACTIONS (1)
  - Acute kidney injury [Recovered/Resolved]

NARRATIVE: CASE EVENT DATE: 20161128
